FAERS Safety Report 14696019 (Version 1)
Quarter: 2018Q1

REPORT INFORMATION
  Report Type: Spontaneous
  Country: GB (occurrence: GB)
  Receive Date: 20180329
  Receipt Date: 20180329
  Transmission Date: 20180509
  Serious: Yes (Other)
  Sender: FDA-Public Use
  Company Number: GB-BAUSCH-BL-2018-007299

PATIENT
  Age: 35 Year
  Sex: Female
  Weight: 73.02 kg

DRUGS (1)
  1. VENLAFAXINE [Suspect]
     Active Substance: VENLAFAXINE HYDROCHLORIDE
     Indication: ANXIETY
     Route: 048
     Dates: start: 20040901

REACTIONS (5)
  - Anxiety [Not Recovered/Not Resolved]
  - Drug dependence [Unknown]
  - Agitation [Not Recovered/Not Resolved]
  - Withdrawal syndrome [Unknown]
  - Hypervigilance [Unknown]

NARRATIVE: CASE EVENT DATE: 20040901
